FAERS Safety Report 10201031 (Version 2)
Quarter: 2018Q1

REPORT INFORMATION
  Report Type: Report from Study
  Country: US (occurrence: US)
  Receive Date: 20140528
  Receipt Date: 20180116
  Transmission Date: 20180508
  Serious: Yes (Hospitalization, Other)
  Sender: FDA-Public Use
  Company Number: PHEH2014US010519

PATIENT
  Age: 35 Year
  Sex: Male

DRUGS (3)
  1. HYDROXYUREA. [Suspect]
     Active Substance: HYDROXYUREA
     Indication: CHRONIC MYELOID LEUKAEMIA
     Dosage: UNK UKN, UNK
     Route: 065
  2. GLEEVEC [Suspect]
     Active Substance: IMATINIB MESYLATE
     Indication: CHRONIC MYELOID LEUKAEMIA
     Dosage: UNK UKN, UNK
  3. HECORIA [Suspect]
     Active Substance: TACROLIMUS
     Indication: CHRONIC MYELOID LEUKAEMIA
     Dosage: 1 MG, BID
     Route: 048

REACTIONS (4)
  - Mucosal inflammation [Unknown]
  - Chronic myeloid leukaemia transformation [Unknown]
  - Oesophagitis [Unknown]
  - Blast crisis in myelogenous leukaemia [Unknown]

NARRATIVE: CASE EVENT DATE: 201312
